FAERS Safety Report 23048930 (Version 1)
Quarter: 2023Q4

REPORT INFORMATION
  Report Type: Spontaneous
  Country: US (occurrence: None)
  Receive Date: 20231005
  Receipt Date: 20231005
  Transmission Date: 20240110
  Serious: Yes (Disabling)
  Sender: FDA-Public Use
  Company Number: None

PATIENT
  Age: 26 Year
  Sex: Female
  Weight: 135.62 kg

DRUGS (4)
  1. MIRENA [Suspect]
     Active Substance: LEVONORGESTREL
  2. LORAZEPAM [Concomitant]
  3. Aspirin [Concomitant]
  4. TYLENOL [Concomitant]

REACTIONS (3)
  - Pain [None]
  - Mental disorder [None]
  - Chest pain [None]

NARRATIVE: CASE EVENT DATE: 20230621
